FAERS Safety Report 4762859-8 (Version None)
Quarter: 2005Q3

REPORT INFORMATION
  Report Type: 
  Country: None (occurrence: None)
  Receive Date: 20050907
  Receipt Date: 20050829
  Transmission Date: 20060218
  Serious: Yes (Other)
  Sender: FDA-Public Use
  Company Number: PHBS2005FR12971

PATIENT
  Age: 69 Year
  Sex: Male

DRUGS (2)
  1. IMATINIB [Suspect]
     Indication: CHRONIC MYELOID LEUKAEMIA
     Dosage: 600 MG/D
  2. IMATINIB [Suspect]
     Dosage: 400 MG/D

REACTIONS (2)
  - PROSTATE CANCER [None]
  - PROSTATIC OPERATION [None]
